FAERS Safety Report 7530518-4 (Version None)
Quarter: 2011Q2

REPORT INFORMATION
  Report Type: 
  Country: None (occurrence: None)
  Receive Date: 20110607
  Receipt Date: 20110527
  Transmission Date: 20111010
  Serious: Yes (Hospitalization)
  Sender: FDA-Public Use
  Company Number: DE-BAYER-2011-047821

PATIENT
  Age: 76 Year
  Sex: Female

DRUGS (11)
  1. NAPROXEN SODIUM [Suspect]
     Indication: BACK PAIN
     Dosage: 500 MG, BID
     Route: 048
     Dates: end: 20101213
  2. CALCIUM CARBONATE [Concomitant]
  3. FORTEO [Concomitant]
  4. COZAAR [Concomitant]
  5. HUMIRA [Concomitant]
  6. TENORMIN [Concomitant]
  7. PANTOPRAZOLE [Concomitant]
  8. OXYCONTIN [Concomitant]
  9. ASPIRIN [Suspect]
     Indication: BACK PAIN
     Dosage: 500 MG, PRN
     Route: 065
     Dates: end: 20101213
  10. BETASERC [Concomitant]
  11. PENTOXIFYLLINE [Concomitant]

REACTIONS (5)
  - ANAEMIA [None]
  - SMALL INTESTINAL PERFORATION [None]
  - SEPSIS [None]
  - PERITONITIS [None]
  - TACHYCARDIA [None]
